FAERS Safety Report 7994420-6 (Version None)
Quarter: 2011Q4

REPORT INFORMATION
  Report Type: 
  Country: None (occurrence: None)
  Receive Date: 20111220
  Receipt Date: 20111209
  Transmission Date: 20120403
  Serious: Yes (Hospitalization)
  Sender: FDA-Public Use
  Company Number: CA-JNJFOC-20111205869

PATIENT
  Sex: Female
  Weight: 54.5 kg

DRUGS (4)
  1. FLAGYL [Concomitant]
  2. CIPROFLOXACIN [Concomitant]
  3. REMICADE [Suspect]
     Indication: CROHN'S DISEASE
     Route: 042
     Dates: start: 20110926
  4. IMURAN [Concomitant]

REACTIONS (1)
  - PULMONARY EMBOLISM [None]
